FAERS Safety Report 9201922 (Version 2)
Quarter: 2013Q2

REPORT INFORMATION
  Report Type: Spontaneous
  Country: US (occurrence: None)
  Receive Date: 20130328
  Receipt Date: 20130408
  Transmission Date: 20140414
  Serious: Yes (Life-Threatening, Hospitalization, Other)
  Sender: FDA-Public Use
  Company Number: AMAG201300048

PATIENT
  Age: 69 Year
  Sex: Male
  Weight: 78.9 kg

DRUGS (13)
  1. FERAHEME (FERUMOXYTOL) INJECTION, 510MG [Suspect]
     Indication: IRON DEFICIENCY ANAEMIA
     Dosage: 5 ML, SINGLE, INTRAVENOUS
     Route: 042
     Dates: start: 20130319, end: 20130319
  2. ASPIRIN (ACETYLSALICYLIC ACID) [Concomitant]
  3. DIGOXIN (DIGOXIN) [Concomitant]
  4. POTASSIUM(POTASSIUM GLUCONATE) [Concomitant]
  5. FERROUS SULFATE (FERROUS SULFATE) [Concomitant]
  6. LASIX (FUROSEMIDE SODIUM) [Concomitant]
  7. GLIMEPIRIDE(GLIMEPIRIDE) [Concomitant]
  8. GLYBURIDE(GLYBURIDE) [Concomitant]
  9. SIMVASTATIN(SIMVASTATIN) [Concomitant]
  10. INSULIN (INSULIN) [Concomitant]
  11. METOLAZONE(METOLAZONE) [Concomitant]
  12. PRILOSEC(OMEPRAZOLE) [Concomitant]
  13. NORMAL SALINE (NORMAL SALINE) [Concomitant]

REACTIONS (34)
  - Respiratory arrest [None]
  - Circulatory collapse [None]
  - Infusion related reaction [None]
  - Dizziness [None]
  - Dizziness [None]
  - Flushing [None]
  - Tremor [None]
  - Decorticate posture [None]
  - Postural reflex impairment [None]
  - Unresponsive to stimuli [None]
  - Pulse absent [None]
  - Chest pain [None]
  - Blood pressure diastolic decreased [None]
  - Sinus tachycardia [None]
  - Jugular vein distension [None]
  - Pleural effusion [None]
  - Oedema peripheral [None]
  - Neuropathy peripheral [None]
  - Atelectasis [None]
  - Cardiomegaly [None]
  - Pulmonary oedema [None]
  - Atrial fibrillation [None]
  - Supraventricular extrasystoles [None]
  - Electrocardiogram ST-T change [None]
  - White blood cell count increased [None]
  - Neutrophil count increased [None]
  - Lymphocyte count increased [None]
  - Monocyte count increased [None]
  - Blood glucose increased [None]
  - Blood sodium decreased [None]
  - Blood potassium decreased [None]
  - Blood calcium decreased [None]
  - Glomerular filtration rate decreased [None]
  - Anisocytosis [None]
